FAERS Safety Report 5986363-4 (Version None)
Quarter: 2008Q4

REPORT INFORMATION
  Report Type: 
  Country: None (occurrence: None)
  Receive Date: 20081209
  Receipt Date: 20081203
  Transmission Date: 20090506
  Serious: Yes (Hospitalization)
  Sender: FDA-Public Use
  Company Number: FR-NOVOPROD-280545

PATIENT
  Age: 71 Year
  Sex: Male
  Weight: 70 kg

DRUGS (7)
  1. LEVEMIR [Suspect]
     Indication: TYPE 1 DIABETES MELLITUS
     Dosage: 34 IU, QD
     Route: 058
     Dates: start: 20080627, end: 20081001
  2. LODALES [Concomitant]
     Dosage: 20 MG, QD
     Route: 048
  3. RENITEC                            /00574901/ [Concomitant]
     Dosage: 20 MG, QD
     Route: 048
  4. MONO-TILDIEM [Concomitant]
     Dosage: 200 MG, QD
     Route: 048
  5. PLAVIX [Concomitant]
     Dosage: 75 MG, QD
     Route: 048
  6. KAYEXALATE [Concomitant]
     Dosage: 1 DF, QD
     Route: 048
  7. REMICADE [Concomitant]

REACTIONS (6)
  - BLISTER [None]
  - DIABETIC BULLOSIS [None]
  - ERYSIPELAS [None]
  - INJECTION SITE PRURITUS [None]
  - NAUSEA [None]
  - PRURITUS GENERALISED [None]
